FAERS Safety Report 5735779-X (Version None)
Quarter: 2008Q2

REPORT INFORMATION
  Report Type: 
  Country: None (occurrence: None)
  Receive Date: 20080509
  Receipt Date: 20080509
  Transmission Date: 20081010
  Serious: Yes (Hospitalization)
  Sender: FDA-Public Use
  Company Number: None

PATIENT
  Sex: Male
  Weight: 56.6996 kg

DRUGS (7)
  1. CETUXIMAB [Suspect]
     Indication: LARYNGEAL CANCER
     Dosage: 412 MG IV WEEKLY
     Route: 042
     Dates: start: 20080410, end: 20080424
  2. FLOMAX [Concomitant]
  3. LEXAPRO [Concomitant]
  4. CLARITIN [Concomitant]
  5. BENADRYL [Concomitant]
  6. MYLANTA [Concomitant]
  7. LIDOCAINE HCL VISCOUS [Concomitant]

REACTIONS (1)
  - HAEMOPTYSIS [None]
